FAERS Safety Report 16902931 (Version 2)
Quarter: 2019Q4

REPORT INFORMATION
  Report Type: Spontaneous
  Country: NL (occurrence: NL)
  Receive Date: 20191010
  Receipt Date: 20191230
  Transmission Date: 20200122
  Serious: Yes (Hospitalization)
  Sender: FDA-Public Use
  Company Number: NL-ROCHE-2431363

PATIENT
  Age: 75 Year
  Sex: Male

DRUGS (2)
  1. RITUXIMAB. [Suspect]
     Active Substance: RITUXIMAB
     Indication: CHRONIC LYMPHOCYTIC LEUKAEMIA
     Dosage: UNK
     Route: 065
  2. BENDAMUSTINE [Suspect]
     Active Substance: BENDAMUSTINE
     Indication: CHRONIC LYMPHOCYTIC LEUKAEMIA
     Dosage: UNK
     Route: 065

REACTIONS (15)
  - Dysarthria [Recovered/Resolved]
  - Asthenia [Recovered/Resolved]
  - Hyperventilation [Unknown]
  - Metabolic acidosis [Unknown]
  - Vomiting [Recovered/Resolved]
  - Blood uric acid increased [Unknown]
  - Hyperkalaemia [Unknown]
  - Dyspnoea [Recovered/Resolved]
  - PO2 increased [Unknown]
  - Blood phosphorus increased [Unknown]
  - QRS axis abnormal [Unknown]
  - Blood bicarbonate decreased [Unknown]
  - Tumour lysis syndrome [Recovered/Resolved]
  - Acute kidney injury [Recovered/Resolved]
  - Dehydration [Recovered/Resolved]
